FAERS Safety Report 10365160 (Version 1)
Quarter: 2014Q3

REPORT INFORMATION
  Report Type: Report from Study
  Country: US (occurrence: US)
  Receive Date: 20140806
  Receipt Date: 20140806
  Transmission Date: 20150326
  Serious: Yes (Other)
  Sender: FDA-Public Use
  Company Number: US-ROCHE-1445790

PATIENT
  Sex: Male
  Weight: 27.3 kg

DRUGS (1)
  1. NUTROPIN [Suspect]
     Active Substance: SOMATROPIN
     Indication: GROWTH RETARDATION
     Dosage: 0.24 MG/KG-WK
     Route: 058

REACTIONS (2)
  - Arthralgia [Recovered/Resolved]
  - Blood cholesterol increased [Unknown]
